FAERS Safety Report 15629827 (Version 1)
Quarter: 2018Q4

REPORT INFORMATION
  Report Type: Report from Study
  Country: US (occurrence: US)
  Receive Date: 20181117
  Receipt Date: 20181117
  Transmission Date: 20190205
  Serious: No
  Sender: FDA-Public Use
  Company Number: US-THERATECHNOLOGIES, INC.-TH-2018-00398

PATIENT

DRUGS (1)
  1. EGRIFTA [Suspect]
     Active Substance: TESAMORELIN
     Dosage: UNK
     Dates: start: 20180716

REACTIONS (2)
  - Arthralgia [Recovered/Resolved]
  - Nausea [Not Recovered/Not Resolved]

NARRATIVE: CASE EVENT DATE: 2018
